FAERS Safety Report 12586616 (Version 1)
Quarter: 2016Q3

REPORT INFORMATION
  Report Type: Spontaneous
  Country: US (occurrence: US)
  Receive Date: 20160725
  Receipt Date: 20160725
  Transmission Date: 20161109
  Serious: No
  Sender: FDA-Public Use
  Company Number: US-PFIZER INC-2016326661

PATIENT
  Age: 35 Year
  Sex: Male
  Weight: 109 kg

DRUGS (4)
  1. OXCARBAZEPINE. [Concomitant]
     Active Substance: OXCARBAZEPINE
     Indication: LOSS OF CONSCIOUSNESS
     Dosage: 600 MG, 2X/DAY
  2. VIMPAT [Concomitant]
     Active Substance: LACOSAMIDE
     Indication: LOSS OF CONSCIOUSNESS
     Dosage: 200 MG, 2X/DAY
  3. CLONAZEPAM. [Concomitant]
     Active Substance: CLONAZEPAM
     Indication: LOSS OF CONSCIOUSNESS
     Dosage: 1 MG, 2X/DAY
  4. VIAGRA [Suspect]
     Active Substance: SILDENAFIL CITRATE
     Indication: ERECTILE DYSFUNCTION
     Dosage: 50 MG; ORALLY, 30 MINUTES BEFORE SEXUAL ACTIVITY
     Route: 048

REACTIONS (1)
  - Drug ineffective [Unknown]
